FAERS Safety Report 22257472 (Version 1)
Quarter: 2023Q2

REPORT INFORMATION
  Report Type: Report from Study
  Country: DE (occurrence: DE)
  Receive Date: 20230427
  Receipt Date: 20230427
  Transmission Date: 20230722
  Serious: Yes (Death, Other)
  Sender: FDA-Public Use
  Company Number: DE-BAYER-2023A055424

PATIENT
  Age: 68 Year
  Sex: Female

DRUGS (1)
  1. VENTAVIS [Suspect]
     Active Substance: ILOPROST
     Indication: Pulmonary arterial hypertension
     Route: 055
     Dates: start: 20210205, end: 20230410

REACTIONS (3)
  - Death [Fatal]
  - Pulmonary hypertension [Not Recovered/Not Resolved]
  - Drug ineffective [Unknown]
